FAERS Safety Report 4555658-3 (Version None)
Quarter: 2005Q1

REPORT INFORMATION
  Report Type: 
  Country: None (occurrence: None)
  Receive Date: 20050118
  Receipt Date: 20050118
  Transmission Date: 20050727
  Serious: Yes (Other)
  Sender: FDA-Public Use
  Company Number: None

PATIENT
  Age: 37 Year
  Sex: Female
  Weight: 57.1532 kg

DRUGS (2)
  1. ZICAM NASAL GEL  ZINCUM GLUCONIUM 2X GET TECH [Suspect]
     Indication: NASOPHARYNGITIS
     Dosage: 1 PUMP  EVERY 4 HRS NASAL
     Route: 045
     Dates: start: 20030113, end: 20030114
  2. ASPIRIN [Concomitant]

REACTIONS (2)
  - ANOSMIA [None]
  - HYPOGEUSIA [None]
